APPROVED DRUG PRODUCT: BUSULFAN
Active Ingredient: BUSULFAN
Strength: 6MG/ML
Dosage Form/Route: INJECTABLE;INJECTION
Application: A215235 | Product #001 | TE Code: AP
Applicant: PRINSTON PHARMACEUTICAL INC
Approved: Sep 11, 2024 | RLD: No | RS: No | Type: RX